FAERS Safety Report 4375452-6 (Version None)
Quarter: 2004Q2

REPORT INFORMATION
  Report Type: 
  Country: None (occurrence: None)
  Receive Date: 20040607
  Receipt Date: 20040521
  Transmission Date: 20050107
  Serious: Yes (Death, Other)
  Sender: FDA-Public Use
  Company Number: 8006230

PATIENT
  Age: 82 Year
  Sex: Female

DRUGS (11)
  1. KEPPRA [Suspect]
     Indication: CONVULSION
     Dosage: 250 MG 2/D PO
     Route: 048
     Dates: start: 20040326, end: 20040301
  2. KEPPRA [Suspect]
     Indication: CONVULSION
     Dosage: 500 MG 2/D PO
     Route: 048
     Dates: start: 20040301, end: 20040401
  3. NEURONTIN [Concomitant]
  4. DILANTIN [Concomitant]
  5. DECADRON [Concomitant]
  6. ATENOLOL [Concomitant]
  7. PRAVACHOL [Concomitant]
  8. CARAFATE [Concomitant]
  9. SYNTHROID [Concomitant]
  10. MONOPRIL [Concomitant]
  11. ASPIRIN [Concomitant]

REACTIONS (1)
  - THROMBOCYTOPENIA [None]
